FAERS Safety Report 13757043 (Version 1)
Quarter: 2017Q3

REPORT INFORMATION
  Report Type: Spontaneous
  Country: US (occurrence: US)
  Receive Date: 20170715
  Receipt Date: 20170715
  Transmission Date: 20171127
  Serious: Yes (Other)
  Sender: FDA-Public Use
  Company Number: US-AMGEN-USASP2017104915

PATIENT
  Age: 68 Year
  Sex: Female

DRUGS (1)
  1. PROLIA [Suspect]
     Active Substance: DENOSUMAB
     Indication: PRODUCT USED FOR UNKNOWN INDICATION
     Dosage: UNK
     Route: 065
     Dates: start: 20151231, end: 20151231

REACTIONS (7)
  - Thyroid disorder [Unknown]
  - Arthralgia [Unknown]
  - Tooth fracture [Unknown]
  - Weight increased [Unknown]
  - Hiatus hernia [Unknown]
  - Tooth loss [Unknown]
  - Device failure [Unknown]

NARRATIVE: CASE EVENT DATE: 201601
